FAERS Safety Report 19082473 (Version 2)
Quarter: 2021Q2

REPORT INFORMATION
  Report Type: Spontaneous
  Country: US (occurrence: US)
  Receive Date: 20210401
  Receipt Date: 20210531
  Transmission Date: 20210717
  Serious: No
  Sender: FDA-Public Use
  Company Number: US-JNJFOC-20210344774

PATIENT

DRUGS (2)
  1. ZYRTEC [Suspect]
     Active Substance: CETIRIZINE HYDROCHLORIDE
     Indication: HYPERSENSITIVITY
     Dosage: MANY YEARS
     Route: 065
  2. ZYRTEC [Suspect]
     Active Substance: CETIRIZINE HYDROCHLORIDE
     Dosage: SMALLER DOSES
     Route: 065

REACTIONS (5)
  - Sluggishness [Unknown]
  - Drug ineffective [Unknown]
  - Euphoric mood [Unknown]
  - Somnolence [Unknown]
  - Feeling abnormal [Unknown]
